FAERS Safety Report 9376461 (Version 1)
Quarter: 2013Q3

REPORT INFORMATION
  Report Type: Report from Study
  Country: JP (occurrence: JP)
  Receive Date: 20130701
  Receipt Date: 20130701
  Transmission Date: 20140515
  Serious: Yes (Hospitalization, Other)
  Sender: FDA-Public Use
  Company Number: JP-JNJFOC-20130616876

PATIENT
  Age: 65 Year
  Sex: Male
  Weight: 80 kg

DRUGS (21)
  1. PROGRAF [Suspect]
     Indication: LUPUS NEPHRITIS
     Dosage: EVERY OTHER DAY
     Route: 048
     Dates: start: 20090824, end: 20100831
  2. PROGRAF [Suspect]
     Indication: LUPUS NEPHRITIS
     Route: 048
     Dates: start: 20090518, end: 20090713
  3. PROGRAF [Suspect]
     Indication: LUPUS NEPHRITIS
     Route: 048
     Dates: start: 20090727, end: 20090824
  4. ITRIZOLE [Interacting]
     Indication: PROPHYLAXIS
     Route: 048
     Dates: end: 20100525
  5. PREDONINE [Concomitant]
     Route: 048
     Dates: start: 20101109, end: 20101226
  6. PREDONINE [Concomitant]
     Route: 048
     Dates: start: 20100928, end: 20101108
  7. PREDONINE [Concomitant]
     Route: 048
     Dates: start: 20101227, end: 20110424
  8. PREDONINE [Concomitant]
     Route: 048
     Dates: start: 20110425
  9. PREDONINE [Concomitant]
     Route: 048
  10. PREDONINE [Concomitant]
     Route: 048
  11. LASIX [Concomitant]
     Route: 048
  12. WARFARIN [Concomitant]
     Route: 048
  13. ZYLORIC [Concomitant]
     Route: 048
     Dates: end: 20100831
  14. NORVASC [Concomitant]
     Route: 048
     Dates: end: 20100831
  15. MAINTATE [Concomitant]
     Route: 048
  16. DIOVAN [Concomitant]
     Route: 048
     Dates: end: 20100831
  17. MEXITIL [Concomitant]
     Route: 048
     Dates: end: 20100525
  18. FOSAMAC [Concomitant]
     Route: 048
     Dates: end: 20100831
  19. ALFAROL [Concomitant]
     Route: 048
     Dates: end: 20100831
  20. TAKEPRON [Concomitant]
     Route: 065
  21. BAKTAR [Concomitant]
     Route: 065

REACTIONS (5)
  - Tremor [Recovered/Resolved]
  - Drug interaction [Unknown]
  - Prostate cancer [Not Recovered/Not Resolved]
  - Urinary retention [Recovered/Resolved]
  - Nephrotic syndrome [Recovering/Resolving]
